FAERS Safety Report 5864909-4 (Version None)
Quarter: 2008Q3

REPORT INFORMATION
  Report Type: 
  Country: None (occurrence: None)
  Receive Date: 20080829
  Receipt Date: 20080716
  Transmission Date: 20090109
  Serious: No
  Sender: FDA-Public Use
  Company Number: US-ABBOTT-08P-163-0463502-00

PATIENT

DRUGS (5)
  1. SIMCOR [Suspect]
     Indication: BLOOD CHOLESTEROL
     Dates: start: 20080601
  2. INSULIN [Concomitant]
     Indication: TYPE 1 DIABETES MELLITUS
  3. UNKNOWN BLOOD PRESSURE PILL [Concomitant]
     Indication: BLOOD PRESSURE
  4. UNKNOWN DIABETES PILL [Concomitant]
     Indication: DIABETES MELLITUS
  5. UNKNOWN DIABETES PILL [Concomitant]

REACTIONS (2)
  - FEELING HOT [None]
  - PRURITUS [None]
